FAERS Safety Report 9418690 (Version 1)
Quarter: 2013Q3

REPORT INFORMATION
  Report Type: Spontaneous
  Country: IN (occurrence: IN)
  Receive Date: 20130725
  Receipt Date: 20130725
  Transmission Date: 20140515
  Serious: Yes (Other)
  Sender: FDA-Public Use
  Company Number: IN-ACCORD-018611

PATIENT
  Age: 55 Year
  Sex: Female

DRUGS (2)
  1. TRAMADOL [Suspect]
     Indication: ABDOMINAL PAIN
  2. CEFTRIAXONE [Concomitant]

REACTIONS (1)
  - Delirium [Recovered/Resolved]
